FAERS Safety Report 16948875 (Version 5)
Quarter: 2020Q4

REPORT INFORMATION
  Report Type: Report from Study
  Country: US (occurrence: US)
  Receive Date: 20191023
  Receipt Date: 20201109
  Transmission Date: 20210113
  Serious: Yes (Other)
  Sender: FDA-Public Use
  Company Number: NVSC2019US012018

PATIENT
  Sex: Female

DRUGS (4)
  1. GILENYA [Suspect]
     Active Substance: FINGOLIMOD HYDROCHLORIDE
     Dosage: 0.5 MG, QD
     Route: 048
  2. GILENYA [Suspect]
     Active Substance: FINGOLIMOD HYDROCHLORIDE
     Dosage: 0.5 MG, QD
     Route: 048
  3. GILENYA [Suspect]
     Active Substance: FINGOLIMOD HYDROCHLORIDE
     Indication: MULTIPLE SCLEROSIS
     Dosage: 0.5 MG, QD
     Route: 048
  4. GILENYA [Suspect]
     Active Substance: FINGOLIMOD HYDROCHLORIDE
     Dosage: 0.5 MG, QD
     Route: 048

REACTIONS (10)
  - Chorioretinal atrophy [Unknown]
  - Macular degeneration [Unknown]
  - Central vision loss [Unknown]
  - Stress [Unknown]
  - Pseudoxanthoma elasticum [Unknown]
  - Macular oedema [Recovered/Resolved]
  - Central nervous system lesion [Unknown]
  - Weight decreased [Unknown]
  - Diabetes mellitus [Unknown]
  - Eye discharge [Unknown]
